FAERS Safety Report 5313848-6 (Version None)
Quarter: 2007Q2

REPORT INFORMATION
  Report Type: 
  Country: None (occurrence: None)
  Receive Date: 20070501
  Receipt Date: 20070426
  Transmission Date: 20071010
  Serious: Yes (Other)
  Sender: FDA-Public Use
  Company Number: JP-JPN-A200701446

PATIENT
  Age: 29 Year
  Sex: Female
  Weight: 47 kg

DRUGS (13)
  1. PAXIL [Suspect]
     Indication: DEPRESSIVE SYMPTOM
     Route: 048
     Dates: start: 20070308, end: 20070315
  2. CONSTAN [Concomitant]
     Dosage: 1.2MG PER DAY
     Route: 048
     Dates: start: 20070308, end: 20070315
  3. RESLIN [Concomitant]
     Dosage: 25MG PER DAY
     Route: 048
     Dates: start: 20070308, end: 20070315
  4. PENTASA [Concomitant]
     Dosage: 1500MG PER DAY
     Route: 048
     Dates: start: 20070120
  5. PREDONINE [Concomitant]
     Route: 048
     Dates: start: 20070123
  6. DEPAS [Concomitant]
     Indication: ANXIETY DISORDER
     Dosage: 1.5MG PER DAY
     Route: 048
     Dates: start: 20070131
  7. GASTER D [Concomitant]
     Dosage: 40MG PER DAY
     Route: 048
     Dates: start: 20070206
  8. EURODIN [Concomitant]
     Indication: ANXIETY DISORDER
     Dosage: 2MG PER DAY
     Route: 048
     Dates: start: 20070227, end: 20070306
  9. CEREKINON [Concomitant]
     Dosage: 300MG PER DAY
     Route: 048
     Dates: start: 20070303
  10. DIAZEPAM [Concomitant]
     Indication: ANXIETY DISORDER
     Dosage: 5MG PER DAY
     Route: 048
     Dates: start: 20070307
  11. LEVOFLOXACIN [Concomitant]
     Indication: ANXIETY DISORDER
     Dosage: 300MG PER DAY
     Route: 048
     Dates: start: 20070316, end: 20070325
  12. UNKNOWN DRUG [Concomitant]
     Indication: CYTOMEGALOVIRUS INFECTION
     Dosage: 400MG PER DAY
     Route: 042
     Dates: start: 20070213, end: 20070226
  13. ROCEPHIN [Concomitant]
     Indication: INFECTION
     Dosage: 1G PER DAY
     Route: 042
     Dates: start: 20070210, end: 20070220

REACTIONS (3)
  - ANAEMIA [None]
  - COLITIS ULCERATIVE [None]
  - HAEMATOCHEZIA [None]
